FAERS Safety Report 5699639-5 (Version None)
Quarter: 2008Q2

REPORT INFORMATION
  Report Type: 
  Country: None (occurrence: None)
  Receive Date: 20080410
  Receipt Date: 20080331
  Transmission Date: 20081010
  Serious: Yes (Hospitalization)
  Sender: FDA-Public Use
  Company Number: PHHY2008GR04119

PATIENT
  Age: 61 Year
  Sex: Female

DRUGS (3)
  1. MESULID [Concomitant]
  2. ASPIRIN [Concomitant]
  3. EXFORGE [Suspect]

REACTIONS (5)
  - ASPARTATE AMINOTRANSFERASE INCREASED [None]
  - BLOOD ALKALINE PHOSPHATASE INCREASED [None]
  - BLOOD IRON INCREASED [None]
  - HEPATIC ENZYME INCREASED [None]
  - SERUM FERRITIN INCREASED [None]
